FAERS Safety Report 21066857 (Version 2)
Quarter: 2022Q3

REPORT INFORMATION
  Report Type: Spontaneous
  Country: FR (occurrence: FR)
  Receive Date: 20220712
  Receipt Date: 20220801
  Transmission Date: 20221027
  Serious: Yes (Other)
  Sender: FDA-Public Use
  Company Number: FR-AFSSAPS-TS20221500

PATIENT
  Age: 72 Year
  Sex: Female
  Weight: 74 kg

DRUGS (12)
  1. ALLOPURINOL [Suspect]
     Active Substance: ALLOPURINOL
     Indication: Product used for unknown indication
     Dosage: 300 MILLIGRAM, ONCE A DAY
     Route: 048
     Dates: start: 202105
  2. DOXORUBICIN [Suspect]
     Active Substance: DOXORUBICIN
     Indication: B-cell lymphoma
     Dosage: 90 MILLIGRAM, CYCLICAL
     Route: 042
     Dates: start: 20210526, end: 20210915
  3. ACETAMINOPHEN [Suspect]
     Active Substance: ACETAMINOPHEN
     Indication: Premedication
     Dosage: 1 GRAM, CYCLICAL
     Route: 048
     Dates: start: 20210526, end: 20210915
  4. VALACYCLOVIR HYDROCHLORIDE [Suspect]
     Active Substance: VALACYCLOVIR HYDROCHLORIDE
     Indication: Prophylaxis
     Dosage: 500 MILLIGRAM, ONCE A DAY
     Route: 048
     Dates: start: 202105
  5. BACTRIM [Suspect]
     Active Substance: SULFAMETHOXAZOLE\TRIMETHOPRIM
     Indication: Prophylaxis
     Dosage: 3 DOSAGE FORM, EVERY WEEK
     Dates: start: 202105
  6. PREDNISONE [Suspect]
     Active Substance: PREDNISONE
     Indication: B-cell lymphoma
     Dosage: UNK
     Route: 048
     Dates: start: 20210527, end: 202109
  7. CYCLOPHOSPHAMIDE [Suspect]
     Active Substance: CYCLOPHOSPHAMIDE
     Indication: B-cell lymphoma
     Dosage: 1020 MILLIGRAM, CYCLICAL
     Route: 042
     Dates: start: 20210526, end: 20210915
  8. POLARAMINE [Suspect]
     Active Substance: DEXCHLORPHENIRAMINE MALEATE
     Indication: Premedication
     Dosage: 5 MILLIGRAM, CYCLICAL
     Route: 042
     Dates: start: 20210526, end: 20210915
  9. MABTHERA [Suspect]
     Active Substance: RITUXIMAB
     Indication: B-cell lymphoma
     Dosage: 1400 MILLIGRAM, CYCLICAL
     Route: 058
     Dates: start: 20210526, end: 20210915
  10. METHYLPREDNISOLONE [Suspect]
     Active Substance: METHYLPREDNISOLONE
     Indication: Premedication
     Dosage: CYCLICAL
     Route: 042
     Dates: start: 20210526, end: 20210915
  11. VINCRISTINE SULFATE [Suspect]
     Active Substance: VINCRISTINE SULFATE
     Indication: B-cell lymphoma
     Dosage: 2 MILLIGRAM, CYCLICAL
     Route: 042
     Dates: start: 20210526, end: 20210915
  12. ONDANSETRON [Suspect]
     Active Substance: ONDANSETRON
     Indication: Premedication
     Dosage: 8 MILLIGRAM, CYCLICAL
     Route: 042
     Dates: start: 20210526, end: 20210915

REACTIONS (1)
  - Organising pneumonia [Not Recovered/Not Resolved]

NARRATIVE: CASE EVENT DATE: 20210918
